FAERS Safety Report 4854047-1 (Version None)
Quarter: 2005Q4

REPORT INFORMATION
  Report Type: 
  Country: None (occurrence: None)
  Receive Date: 20051214
  Receipt Date: 20050916
  Transmission Date: 20060501
  Serious: Yes (Hospitalization)
  Sender: FDA-Public Use
  Company Number: US-MERCK-0509USA02685

PATIENT
  Age: 73 Year
  Sex: Male
  Weight: 81 kg

DRUGS (6)
  1. VIOXX [Suspect]
     Indication: ARTHRITIS
     Route: 048
     Dates: start: 20030601, end: 20041001
  2. LIPITOR [Concomitant]
     Indication: BLOOD CHOLESTEROL INCREASED
     Route: 048
     Dates: start: 20020101, end: 20050405
  3. DOXEPIN HYDROCHLORIDE [Concomitant]
     Indication: ANXIETY
     Route: 048
  4. METHYLPREDNISOLONE [Concomitant]
     Indication: ARTHRITIS
     Route: 065
     Dates: start: 20031201
  5. GLUCOSAMINE [Concomitant]
     Indication: ARTHRITIS
     Route: 048
     Dates: start: 20020101
  6. CLARINEX [Concomitant]
     Route: 048

REACTIONS (7)
  - ACUTE CORONARY SYNDROME [None]
  - AORTIC ANEURYSM [None]
  - BACTERIAL INFECTION [None]
  - BLOOD PRESSURE DIASTOLIC DECREASED [None]
  - CHOLELITHIASIS [None]
  - CORONARY ARTERY STENOSIS [None]
  - MYOCARDIAL INFARCTION [None]
